FAERS Safety Report 7556217-0 (Version None)
Quarter: 2011Q2

REPORT INFORMATION
  Report Type: 
  Country: None (occurrence: None)
  Receive Date: 20110615
  Receipt Date: 20110615
  Transmission Date: 20111010
  Serious: Yes (Other)
  Sender: FDA-Public Use
  Company Number: None

PATIENT
  Age: 69 Year
  Sex: Male
  Weight: 98.8842 kg

DRUGS (2)
  1. SIMVASTATIN [Suspect]
     Indication: BLOOD CHOLESTEROL INCREASED
     Dosage: 80MG PILL ONCE DAILY PO
     Route: 048
     Dates: start: 20070101, end: 20110612
  2. ZOCOR [Suspect]
     Indication: BLOOD CHOLESTEROL INCREASED
     Dosage: 80MG PILL ONCDE DAILY PO
     Route: 048
     Dates: start: 20000101, end: 20070101

REACTIONS (1)
  - ARTHRITIS [None]
